FAERS Safety Report 9320943 (Version 4)
Quarter: 2013Q4

REPORT INFORMATION
  Report Type: Report from Study
  Country: BR (occurrence: BR)
  Receive Date: 20130531
  Receipt Date: 20131226
  Transmission Date: 20140711
  Serious: Yes (Other)
  Sender: FDA-Public Use
  Company Number: BR-ROCHE-1207039

PATIENT
  Sex: Female
  Weight: 83 kg

DRUGS (12)
  1. MABTHERA [Suspect]
     Indication: RHEUMATOID ARTHRITIS
     Route: 042
     Dates: start: 20130515
  2. MABTHERA [Suspect]
     Route: 042
     Dates: start: 20110622, end: 20110706
  3. MABTHERA [Suspect]
     Route: 042
     Dates: start: 20130603
  4. HYDROCHLOROTHIAZIDE [Concomitant]
     Indication: HYPERTENSION
     Route: 065
  5. LOSARTAN [Concomitant]
     Indication: HYPERTENSION
     Route: 065
  6. ARAVA [Concomitant]
  7. DEPURA [Concomitant]
  8. OMEPRAZOLE [Concomitant]
  9. ROSUVASTATIN CALCIUM [Concomitant]
  10. TRAMADOL [Concomitant]
  11. PARACETAMOL [Concomitant]
  12. FLAXSEED OIL [Concomitant]

REACTIONS (6)
  - Renal tubular disorder [Not Recovered/Not Resolved]
  - Renal disorder [Not Recovered/Not Resolved]
  - Renal impairment [Not Recovered/Not Resolved]
  - Red blood cell sedimentation rate increased [Not Recovered/Not Resolved]
  - Cystitis [Recovered/Resolved]
  - Lung disorder [Not Recovered/Not Resolved]
